FAERS Safety Report 13074859 (Version 1)
Quarter: 2016Q4

REPORT INFORMATION
  Report Type: Spontaneous
  Country: US (occurrence: US)
  Receive Date: 20161230
  Receipt Date: 20161230
  Transmission Date: 20170207
  Serious: No
  Sender: FDA-Public Use
  Company Number: US-PFIZER INC-2016544099

PATIENT
  Age: 49 Year
  Sex: Female

DRUGS (16)
  1. ZOVIRAX [Concomitant]
     Active Substance: ACYCLOVIR
     Dosage: 200 MG, DAILY
     Dates: start: 20161003
  2. FOSAMAX [Concomitant]
     Active Substance: ALENDRONATE SODIUM
     Dosage: 70 MG, WEEKLY (1 TABLET/WITH 1 GLASS  OF WATER FIRST THING IN THE MORNING/SIT UPRIGHT FOR 30 MIN)
     Dates: start: 20160825
  3. LOPRESSOR [Concomitant]
     Active Substance: METOPROLOL TARTRATE
     Dosage: 50 MG, 2X/DAY
     Route: 048
     Dates: start: 20151220
  4. ZITHROMAX [Concomitant]
     Active Substance: AZITHROMYCIN DIHYDRATE
     Dosage: 250 MG, ALTERNATE DAY
     Route: 048
     Dates: start: 20160129
  5. VITAMIN D3 [Concomitant]
     Active Substance: CHOLECALCIFEROL
     Dosage: 2000 IU, DAILY
     Route: 048
  6. VFEND [Suspect]
     Active Substance: VORICONAZOLE
     Indication: ALTERNARIA INFECTION
  7. IMURAN [Concomitant]
     Active Substance: AZATHIOPRINE
     Indication: LUNG TRANSPLANT REJECTION
     Dosage: 100 MG, 1X/DAY (EVERY EVENING)
     Dates: start: 20160623, end: 20160919
  8. PROTONIX [Concomitant]
     Active Substance: PANTOPRAZOLE SODIUM
     Indication: GASTROOESOPHAGEAL REFLUX DISEASE
     Dosage: 40 MG, 2X/DAY
     Route: 048
     Dates: start: 20160315
  9. DELTASONE [Concomitant]
     Active Substance: PREDNISONE
     Dosage: 10 MG, DAILY
     Dates: start: 20151220
  10. VFEND [Suspect]
     Active Substance: VORICONAZOLE
     Indication: LUNG TRANSPLANT
     Dosage: 200 MG, 2X/DAY (BEFORE MEALS)
     Route: 048
     Dates: start: 20160609
  11. PRAVACHOL [Concomitant]
     Active Substance: PRAVASTATIN SODIUM
     Indication: HYPERCHOLESTEROLAEMIA
     Dosage: 20 MG, DAILY
     Route: 048
     Dates: start: 20161024
  12. BACTRIM DS [Concomitant]
     Active Substance: SULFAMETHOXAZOLE\TRIMETHOPRIM
     Indication: PNEUMOCYSTIS JIROVECII PNEUMONIA
     Dosage: 1 TABLET THREE TIMES A WEEK; MONDAY, WEDNESDAY, AND FRIDAY
     Dates: start: 20161010
  13. CALCIUM VITAMIN D [Concomitant]
     Active Substance: CALCIUM\VITAMIN D
     Dosage: 1200 MG, DAILY
     Route: 048
  14. MAGNESIUM [Concomitant]
     Active Substance: MAGNESIUM
     Dosage: 500 MG, 2X/DAY
     Route: 048
     Dates: start: 20120716
  15. PROGRAF [Concomitant]
     Active Substance: TACROLIMUS\TACROLIMUS ANHYDROUS
     Dosage: 2 MG, 2X/DAY (TAKE 2 CAPSULES)
     Route: 048
     Dates: start: 20160623
  16. PROGRAF [Concomitant]
     Active Substance: TACROLIMUS\TACROLIMUS ANHYDROUS
     Indication: LUNG TRANSPLANT REJECTION
     Dosage: 0.5 MG, 2X/DAY (TAKE 2 CAPSULES)
     Route: 048
     Dates: start: 20160623

REACTIONS (2)
  - Nausea [Unknown]
  - Product use issue [Unknown]
